FAERS Safety Report 16780853 (Version 1)
Quarter: 2019Q3

REPORT INFORMATION
  Report Type: Spontaneous
  Country: CH (occurrence: CH)
  Receive Date: 20190906
  Receipt Date: 20190906
  Transmission Date: 20191005
  Serious: Yes (Other)
  Sender: FDA-Public Use
  Company Number: CH-JNJFOC-20190902739

PATIENT
  Sex: Male

DRUGS (1)
  1. RIVAROXABAN [Suspect]
     Active Substance: RIVAROXABAN
     Indication: PRODUCT USED FOR UNKNOWN INDICATION
     Route: 048

REACTIONS (7)
  - Cerebrovascular accident [Unknown]
  - Mobility decreased [Unknown]
  - Sleep disorder [Unknown]
  - Gait disturbance [Unknown]
  - Pain [Unknown]
  - Unevaluable event [Unknown]
  - Diplegia [Unknown]
